FAERS Safety Report 5511315-8 (Version None)
Quarter: 2007Q4

REPORT INFORMATION
  Report Type: 
  Country: None (occurrence: None)
  Receive Date: 20071109
  Receipt Date: 20070904
  Transmission Date: 20080405
  Serious: No
  Sender: FDA-Public Use
  Company Number: A0673436A

PATIENT
  Age: 15 Year
  Sex: Male

DRUGS (1)
  1. ALTABAX [Suspect]
     Indication: IMPETIGO
     Dosage: 1APP PER DAY
     Route: 061
     Dates: start: 20070817, end: 20070817

REACTIONS (2)
  - BLISTER [None]
  - BURNING SENSATION [None]
